FAERS Safety Report 7237491-7 (Version None)
Quarter: 2011Q1

REPORT INFORMATION
  Report Type: 
  Country: None (occurrence: None)
  Receive Date: 20110121
  Receipt Date: 20110114
  Transmission Date: 20110831
  Serious: Yes (Hospitalization)
  Sender: FDA-Public Use
  Company Number: BE-SANOFI-AVENTIS-2011SA002627

PATIENT
  Age: 49 Year
  Sex: Female

DRUGS (4)
  1. 5-FU [Concomitant]
     Dates: start: 20101222, end: 20101222
  2. FOLINIC ACID [Concomitant]
     Dates: start: 20101222, end: 20101222
  3. OXALIPLATIN [Suspect]
     Dates: start: 20101222, end: 20101222
  4. BEVACIZUMAB [Suspect]
     Route: 042
     Dates: start: 20101222, end: 20101222

REACTIONS (1)
  - IDIOSYNCRATIC DRUG REACTION [None]
